FAERS Safety Report 4608986-7 (Version None)
Quarter: 2005Q1

REPORT INFORMATION
  Report Type: 
  Country: None (occurrence: None)
  Receive Date: 20050314
  Receipt Date: 20050304
  Transmission Date: 20050727
  Serious: Yes (Other)
  Sender: FDA-Public Use
  Company Number: 000#8#2005-00199

PATIENT
  Age: 74 Year
  Sex: Male

DRUGS (1)
  1. NITROGLYCERIN [Suspect]
     Indication: TILT TABLE TEST

REACTIONS (6)
  - CORONARY ARTERY DISEASE [None]
  - DIZZINESS [None]
  - HYPOTENSION [None]
  - MALAISE [None]
  - MYOCARDIAL INFARCTION [None]
  - PROCEDURAL COMPLICATION [None]
